FAERS Safety Report 10162576 (Version 1)
Quarter: 2014Q2

REPORT INFORMATION
  Report Type: Report from Study
  Country: DE (occurrence: DE)
  Receive Date: 20140509
  Receipt Date: 20140509
  Transmission Date: 20141212
  Serious: Yes (Other)
  Sender: FDA-Public Use
  Company Number: DE-TEVA-478677GER

PATIENT
  Age: 47 Year
  Sex: Female

DRUGS (1)
  1. COPAXONE [Suspect]
     Indication: RELAPSING-REMITTING MULTIPLE SCLEROSIS
     Dosage: 20 MG/ML DAILY;
     Dates: start: 20140215, end: 20140417

REACTIONS (10)
  - Dyspnoea [Recovered/Resolved]
  - Panic reaction [Recovered/Resolved]
  - Erythema [Recovered/Resolved]
  - Head titubation [Recovered/Resolved]
  - Eye movement disorder [Recovered/Resolved]
  - Hyperhidrosis [Recovered/Resolved]
  - Abasia [Recovered/Resolved]
  - Movement disorder [Recovered/Resolved]
  - Chills [Recovered/Resolved]
  - Flushing [Recovered/Resolved]
